FAERS Safety Report 10805116 (Version 1)
Quarter: 2015Q1

REPORT INFORMATION
  Report Type: Report from Study
  Country: US (occurrence: US)
  Receive Date: 20150217
  Receipt Date: 20150217
  Transmission Date: 20150721
  Serious: No
  Sender: FDA-Public Use
  Company Number: US-ABBVIE-14K-163-1256385-00

PATIENT
  Age: 32 Year
  Sex: Female

DRUGS (2)
  1. HUMIRA [Suspect]
     Active Substance: ADALIMUMAB
     Indication: PSORIASIS
     Dates: start: 20140219, end: 20140523
  2. LISINOPRIL. [Concomitant]
     Active Substance: LISINOPRIL
     Indication: HYPERTENSION

REACTIONS (5)
  - Drug ineffective [Not Recovered/Not Resolved]
  - Psoriasis [Not Recovered/Not Resolved]
  - Scar [Not Recovered/Not Resolved]
  - Injection site pustule [Unknown]
  - Rash pustular [Unknown]

NARRATIVE: CASE EVENT DATE: 2014
